FAERS Safety Report 18226342 (Version 1)
Quarter: 2020Q3

REPORT INFORMATION
  Report Type: Spontaneous
  Country: US (occurrence: US)
  Receive Date: 20200902
  Receipt Date: 20200902
  Transmission Date: 20201103
  Serious: Yes (Hospitalization)
  Sender: FDA-Public Use
  Company Number: None

PATIENT
  Age: 80 Year
  Sex: Female
  Weight: 55.3 kg

DRUGS (10)
  1. AMBIEN [Concomitant]
     Active Substance: ZOLPIDEM TARTRATE
  2. LISINOPRIL 10MG [Concomitant]
     Active Substance: LISINOPRIL
  3. OMEPRAZOLE 20MG [Concomitant]
     Active Substance: OMEPRAZOLE
  4. CRESTOR [Concomitant]
     Active Substance: ROSUVASTATIN CALCIUM
  5. PROMACTA [Suspect]
     Active Substance: ELTROMBOPAG OLAMINE
     Indication: IMMUNE THROMBOCYTOPENIA
     Route: 048
     Dates: start: 20200805
  6. NITROFURANTOIN 100MG [Concomitant]
     Active Substance: NITROFURANTOIN
  7. CYCLOBENZAPRINE 7.5MG [Concomitant]
  8. CALTRATE 600?800MG [Concomitant]
  9. AMLODIPINE 2.5MG [Concomitant]
     Active Substance: AMLODIPINE BESYLATE
  10. ACETAMINOPHEN 500MG [Concomitant]
     Active Substance: ACETAMINOPHEN

REACTIONS (2)
  - Femur fracture [None]
  - Fall [None]

NARRATIVE: CASE EVENT DATE: 20200828
